FAERS Safety Report 6407820-2 (Version None)
Quarter: 2009Q4

REPORT INFORMATION
  Report Type: 
  Country: None (occurrence: None)
  Receive Date: 20091015
  Receipt Date: 20091006
  Transmission Date: 20100525
  Serious: Yes (Other)
  Sender: FDA-Public Use
  Company Number: GXKR2009GB11026

PATIENT
  Age: 67 Year
  Sex: Male

DRUGS (4)
  1. ALENDRONIC ACID (NGX) (ALENDRONIC ACID) UNKNOWN [Suspect]
     Indication: SPINAL FRACTURE
     Dates: start: 20000101
  2. ZOLEDRONIC ACID [Suspect]
     Dosage: 1 DF, QMO, INFUSION; 1 DF, QMO,
     Dates: start: 20030101
  3. ZOLEDRONIC ACID [Suspect]
     Dosage: 1 DF, QMO, INFUSION; 1 DF, QMO,
     Dates: start: 20040101
  4. IBANDRONIC ACID (IBANDRONIC ACID) [Suspect]
     Dosage: 1 DF, QMO,

REACTIONS (3)
  - FEMUR FRACTURE [None]
  - IMPAIRED HEALING [None]
  - PAIN [None]
